FAERS Safety Report 7407028-8 (Version None)
Quarter: 2011Q2

REPORT INFORMATION
  Report Type: 
  Country: None (occurrence: None)
  Receive Date: 20110411
  Receipt Date: 20110208
  Transmission Date: 20111010
  Serious: Yes (Death, Other)
  Sender: FDA-Public Use
  Company Number: US-BAYER-201012056NA

PATIENT
  Age: 78 Year
  Sex: Male
  Weight: 113.38 kg

DRUGS (20)
  1. MICARDIS [Concomitant]
     Dosage: 80 MG, QD
  2. AMICAR [Concomitant]
     Dosage: UNK
     Dates: start: 20051104
  3. ACETYLSALICYLIC ACID SRT [Concomitant]
     Dosage: 81 MG, QD
  4. CARBIDOPA + LEVODOPA [Concomitant]
     Dosage: 3/DAY FOR 7 DAYS
  5. SINEMET [Concomitant]
     Dosage: 25/100- 2 4 TIMES DAILY
     Route: 048
  6. MAXZIDE [Concomitant]
     Dosage: 75/50, ONCE A DAY
  7. PROSCAR [Concomitant]
     Dosage: 5 MG, QD
  8. TRASYLOL [Suspect]
     Indication: CORONARY ARTERY BYPASS
     Route: 042
     Dates: start: 20051103
  9. ZOCOR [Concomitant]
     Dosage: 20 MG, QD
  10. CYMBALTA [Concomitant]
     Dosage: 60 MG, BID
  11. CARBIDOPA + LEVODOPA [Concomitant]
     Dosage: 4/DAY FOR 7 DAYS
  12. DOXYCYCLINE [Concomitant]
     Dosage: 2 DAILY
     Dates: start: 20051001
  13. LIPITOR [Concomitant]
     Dosage: 20 MG, QD
     Route: 048
  14. AMICAR [Concomitant]
     Indication: SURGERY
     Dosage: UNK
     Dates: start: 20051103
  15. AMICAR [Concomitant]
     Dosage: UNK
     Dates: start: 20051105
  16. TOPROL-XL [Concomitant]
     Dosage: 25 MG, QD
  17. TOPROL-XL [Concomitant]
     Dosage: O30 MG, QD
     Route: 048
  18. CARBIDOPA + LEVODOPA [Concomitant]
     Dosage: 25/100 TWO/DAY FOR 7 DAYS
  19. BACTRIM [Concomitant]
     Dosage: 2 DAILY
     Dates: start: 20051001
  20. HYDROCODONE BITARTRATE [Concomitant]
     Dosage: UNK UNK, PRN

REACTIONS (13)
  - FEAR [None]
  - RENAL INJURY [None]
  - ANXIETY [None]
  - PAIN [None]
  - INJURY [None]
  - DEATH [None]
  - UNEVALUABLE EVENT [None]
  - ANHEDONIA [None]
  - EMOTIONAL DISTRESS [None]
  - RENAL IMPAIRMENT [None]
  - RENAL FAILURE [None]
  - STRESS [None]
  - MULTI-ORGAN FAILURE [None]
